FAERS Safety Report 24632326 (Version 1)
Quarter: 2024Q4

REPORT INFORMATION
  Report Type: Spontaneous
  Country: US (occurrence: None)
  Receive Date: 20241118
  Receipt Date: 20241118
  Transmission Date: 20250114
  Serious: Yes (Life-Threatening, Disabling, Congenital Anomaly)
  Sender: Public
  Company Number: None

PATIENT
  Age: 23 Year
  Sex: Female
  Weight: 62.1 kg

DRUGS (15)
  1. DEPAKOTE ER [Suspect]
     Active Substance: DIVALPROEX SODIUM
     Indication: Epilepsy
     Dosage: OTHER QUANTITY : 1 TABLET(S);?FREQUENCY : TWICE A DAY;?
     Route: 048
  2. CLONAZEPAM [Concomitant]
     Active Substance: CLONAZEPAM
  3. AMITRIPTYLINE [Concomitant]
     Active Substance: AMITRIPTYLINE
  4. WELCHOL [Concomitant]
     Active Substance: COLESEVELAM HYDROCHLORIDE
  5. ZONISAMIDE [Concomitant]
     Active Substance: ZONISAMIDE
  6. OMEPRAZOLE [Concomitant]
     Active Substance: OMEPRAZOLE
  7. VITAMINS [Concomitant]
     Active Substance: VITAMINS
  8. VITAMIN C [Concomitant]
     Active Substance: ASCORBIC ACID
  9. POTASSIUM [Concomitant]
     Active Substance: POTASSIUM
  10. VITAMIN B COMPLEX [Concomitant]
     Active Substance: CYANOCOBALAMIN\DEXPANTHENOL\NIACINAMIDE\PYRIDOXINE HYDROCHLORIDE\RIBOFLAVIN 5^-PHOSPHATE SODIUM\THIA
  11. IRON [Concomitant]
     Active Substance: IRON
  12. BIOTIN [Concomitant]
     Active Substance: BIOTIN
  13. ZINC [Concomitant]
     Active Substance: ZINC
  14. CALCIUM [Concomitant]
     Active Substance: CALCIUM
  15. MAGNESIUM [Concomitant]
     Active Substance: MAGNESIUM

REACTIONS (14)
  - Maternal exposure during pregnancy [None]
  - Foetal exposure during pregnancy [None]
  - Pregnancy [None]
  - Caesarean section [None]
  - Premature delivery [None]
  - Talipes [None]
  - Hydrocephalus [None]
  - Cognitive disorder [None]
  - Anger [None]
  - Disability [None]
  - Extraskeletal ossification [None]
  - Autism spectrum disorder [None]
  - Anxiety [None]
  - Deafness unilateral [None]

NARRATIVE: CASE EVENT DATE: 19930504
